FAERS Safety Report 25970995 (Version 1)
Quarter: 2025Q4

REPORT INFORMATION
  Report Type: Spontaneous
  Country: US (occurrence: None)
  Receive Date: 20251028
  Receipt Date: 20251028
  Transmission Date: 20260118
  Serious: Yes (Other)
  Sender: FDA-CTU
  Company Number: None

PATIENT
  Age: 56 Year
  Sex: Female
  Weight: 77.3 kg

DRUGS (1)
  1. KORSUVA [Suspect]
     Active Substance: DIFELIKEFALIN ACETATE
     Indication: Pruritus
     Dosage: 0.8 ML 3 TIMES A WEEK INTRAVENOUS BOLUS
     Route: 040
     Dates: start: 20251015, end: 20251015

REACTIONS (5)
  - Visual impairment [None]
  - Headache [None]
  - Pharyngeal disorder [None]
  - Communication disorder [None]
  - Drug hypersensitivity [None]

NARRATIVE: CASE EVENT DATE: 20251015
